FAERS Safety Report 24331053 (Version 1)
Quarter: 2024Q3

REPORT INFORMATION
  Report Type: Spontaneous
  Country: FR (occurrence: FR)
  Receive Date: 20240918
  Receipt Date: 20240918
  Transmission Date: 20241017
  Serious: Yes (Other)
  Sender: TAIHO ONCOLOGY INC
  Company Number: None

PATIENT
  Age: 79 Year
  Sex: Female
  Weight: 85 kg

DRUGS (2)
  1. LONSURF [Suspect]
     Active Substance: TIPIRACIL HYDROCHLORIDE\TRIFLURIDINE
     Indication: Adenocarcinoma of colon
     Dosage: 60 MG, BID, ON DAY 1-5 AND 8-12 OF EACH 28-DAY CYCLE (5J/CURE)
     Route: 048
     Dates: start: 20240506
  2. VEGZELMA [Suspect]
     Active Substance: BEVACIZUMAB-ADCD
     Indication: Adenocarcinoma of colon
     Dosage: 5 MG/KG/CYCLE
     Route: 042
     Dates: start: 20240506

REACTIONS (1)
  - Interstitial lung disease [Not Recovered/Not Resolved]

NARRATIVE: CASE EVENT DATE: 20240708
